FAERS Safety Report 25288413 (Version 2)
Quarter: 2025Q2

REPORT INFORMATION
  Report Type: Report from Study
  Country: US (occurrence: US)
  Receive Date: 20250509
  Receipt Date: 20250630
  Transmission Date: 20250716
  Serious: Yes (Hospitalization)
  Sender: JAZZ
  Company Number: US-JAZZ PHARMACEUTICALS-2025-US-011720

PATIENT
  Sex: Female

DRUGS (2)
  1. EPIDIOLEX [Suspect]
     Active Substance: CANNABIDIOL
     Indication: Epilepsy
     Dosage: 1.75 MILLILITER, BID
     Route: 048
     Dates: start: 202309
  2. EPIDIOLEX [Suspect]
     Active Substance: CANNABIDIOL
     Indication: Partial seizures

REACTIONS (1)
  - Seizure [Recovering/Resolving]
